FAERS Safety Report 6716399-7 (Version None)
Quarter: 2010Q2

REPORT INFORMATION
  Report Type: 
  Country: None (occurrence: None)
  Receive Date: 20100507
  Receipt Date: 20100507
  Transmission Date: 20101027
  Serious: No
  Sender: FDA-Public Use
  Company Number: None

PATIENT
  Age: 11 Year
  Weight: 29.4838 kg

DRUGS (1)
  1. CHILDREN'S TYLENOL CHERRY BLAST (LIQUID) [Suspect]

REACTIONS (8)
  - DYSURIA [None]
  - HEADACHE [None]
  - MALAISE [None]
  - PRODUCT CONTAMINATION PHYSICAL [None]
  - PRODUCT FORMULATION ISSUE [None]
  - PRODUCT QUALITY ISSUE [None]
  - RASH MACULAR [None]
  - RENAL PAIN [None]
